FAERS Safety Report 9123381 (Version 1)
Quarter: 2013Q1

REPORT INFORMATION
  Report Type: Report from Study
  Country: BR (occurrence: BR)
  Receive Date: 20130227
  Receipt Date: 20130227
  Transmission Date: 20140127
  Serious: Yes (Congenital Anomaly, Other)
  Sender: FDA-Public Use
  Company Number: BR-BAYER-2013-025068

PATIENT
  Sex: Male
  Weight: 3 kg

DRUGS (1)
  1. INTERFERON BETA - 1B [Suspect]
     Route: 064

REACTIONS (4)
  - Laryngomalacia [Recovered/Resolved]
  - Weight decreased [Recovered/Resolved]
  - Reflux gastritis [Recovered/Resolved]
  - Foetal exposure during pregnancy [None]
